FAERS Safety Report 4953177-3 (Version None)
Quarter: 2006Q1

REPORT INFORMATION
  Report Type: 
  Country: None (occurrence: None)
  Receive Date: 20060324
  Receipt Date: 20051227
  Transmission Date: 20060701
  Serious: Yes (Death, Hospitalization)
  Sender: FDA-Public Use
  Company Number: US-MERCK-0512USA03851

PATIENT
  Age: 50 Year
  Sex: Female
  Weight: 105 kg

DRUGS (4)
  1. VIOXX [Suspect]
     Indication: OSTEOARTHRITIS
     Route: 048
     Dates: start: 20040816, end: 20040829
  2. VIOXX [Suspect]
     Route: 048
     Dates: start: 20040812, end: 20040815
  3. VIOXX [Suspect]
     Indication: NECK PAIN
     Route: 048
     Dates: start: 20040816, end: 20040829
  4. VIOXX [Suspect]
     Route: 048
     Dates: start: 20040812, end: 20040815

REACTIONS (1)
  - CEREBROVASCULAR ACCIDENT [None]
